FAERS Safety Report 13839670 (Version 1)
Quarter: 2017Q3

REPORT INFORMATION
  Report Type: Spontaneous
  Country: US (occurrence: US)
  Receive Date: 20170805
  Receipt Date: 20170805
  Transmission Date: 20171127
  Serious: Yes (Hospitalization)
  Sender: FDA-Public Use
  Company Number: None

PATIENT
  Age: 63 Year
  Sex: Male

DRUGS (13)
  1. SERTRALINE [Suspect]
     Active Substance: SERTRALINE HYDROCHLORIDE
     Indication: DEPRESSION
     Route: 048
     Dates: start: 20170321
  2. AZATHIOPRINE. [Concomitant]
     Active Substance: AZATHIOPRINE
  3. CARVEDILOL. [Concomitant]
     Active Substance: CARVEDILOL
  4. DOCUSATE [Concomitant]
     Active Substance: DOCUSATE
  5. TRAMADOL. [Concomitant]
     Active Substance: TRAMADOL
  6. ACYCLOVIR. [Concomitant]
     Active Substance: ACYCLOVIR
  7. OMEPRAZOLE. [Concomitant]
     Active Substance: OMEPRAZOLE
  8. URSODIAL [Concomitant]
  9. PREDNISONE. [Concomitant]
     Active Substance: PREDNISONE
  10. ACETAMINOPHEN. [Concomitant]
     Active Substance: ACETAMINOPHEN
  11. NYSTATIN. [Concomitant]
     Active Substance: NYSTATIN
  12. SULFAMETHOXAZOLE/TRIMETHOPRIM [Concomitant]
     Active Substance: SULFAMETHOXAZOLE\TRIMETHOPRIM
  13. TACROLIMUS. [Concomitant]
     Active Substance: TACROLIMUS

REACTIONS (1)
  - Myalgia [None]

NARRATIVE: CASE EVENT DATE: 20170411
